FAERS Safety Report 8661339 (Version 2)
Quarter: 2013Q1

REPORT INFORMATION
  Report Type: Report from Study
  Country: JP (occurrence: JP)
  Receive Date: 20120712
  Receipt Date: 20130311
  Transmission Date: 20140127
  Serious: Yes (Life-Threatening, Hospitalization)
  Sender: FDA-Public Use
  Company Number: JP-009507513-1207JPN000063

PATIENT
  Age: 68 Year
  Sex: Male

DRUGS (4)
  1. AROGLYCEM [Suspect]
     Indication: HYPOGLYCAEMIA
     Dosage: 75 MG, TID
     Route: 048
     Dates: start: 20111122, end: 20111204
  2. AROGLYCEM [Suspect]
     Dosage: 125 MG, TID
     Route: 048
     Dates: start: 20111205, end: 20111212
  3. SANDOSTATIN [Concomitant]
     Indication: GASTRINOMA
     Dosage: 30 MG, BID
     Route: 030
     Dates: start: 201101
  4. SANDOSTATIN [Concomitant]
     Indication: HEPATIC CANCER METASTATIC

REACTIONS (3)
  - Neoplasm progression [Not Recovered/Not Resolved]
  - Oedema [Recovered/Resolved]
  - Anaemia [Recovered/Resolved]
